FAERS Safety Report 14477008 (Version 1)
Quarter: 2018Q1

REPORT INFORMATION
  Report Type: Report from Study
  Country: US (occurrence: US)
  Receive Date: 20180201
  Receipt Date: 20180201
  Transmission Date: 20180509
  Serious: No
  Sender: FDA-Public Use
  Company Number: US-EXELIXIS-CABO-17009559

PATIENT
  Sex: Female

DRUGS (5)
  1. CALCIUM [Concomitant]
     Active Substance: CALCIUM
  2. COLOSTRUM [Concomitant]
  3. CABOMETYX [Suspect]
     Active Substance: CABOZANTINIB S-MALATE
     Indication: RENAL CANCER
     Dosage: 40 MG, QD
     Route: 048
     Dates: start: 20170428
  4. ALFALFA [Concomitant]
     Active Substance: ALFALFA
  5. OMEGA 3 [Concomitant]
     Active Substance: OMEGA-3 FATTY ACIDS

REACTIONS (9)
  - Weight decreased [Unknown]
  - Ageusia [Recovered/Resolved]
  - Alopecia [Recovering/Resolving]
  - Bloody discharge [Unknown]
  - Furuncle [Not Recovered/Not Resolved]
  - Stomatitis [Recovered/Resolved]
  - Fatigue [Recovering/Resolving]
  - Vaginal infection [Recovered/Resolved]
  - Oral discomfort [Unknown]
